FAERS Safety Report 24747282 (Version 1)
Quarter: 2024Q4

REPORT INFORMATION
  Report Type: Spontaneous
  Country: CN (occurrence: CN)
  Receive Date: 20241218
  Receipt Date: 20241218
  Transmission Date: 20250115
  Serious: Yes (Hospitalization)
  Sender: EMD SERONO INC
  Company Number: CN-Merck Healthcare KGaA-2024065038

PATIENT
  Age: 26 Year
  Sex: Female
  Weight: 57 kg

DRUGS (7)
  1. GONAL-F [Suspect]
     Active Substance: FOLLITROPIN
     Indication: Infertility
     Dates: start: 20241107, end: 20241107
  2. LUVERIS [Suspect]
     Active Substance: LUTROPIN ALFA
     Indication: Infertility
     Dates: start: 20241112, end: 20241113
  3. MENOTROPINS [Suspect]
     Active Substance: MENOTROPINS
     Indication: Infertility
     Dosage: 75U
     Dates: start: 20241108, end: 20241114
  4. GANIRELIX ACETATE [Suspect]
     Active Substance: GANIRELIX ACETATE
     Indication: Infertility
     Dates: start: 20241111, end: 20241112
  5. CHORIONIC GONADOTROPHIN [Suspect]
     Active Substance: CHORIOGONADOTROPIN ALFA
     Indication: Infertility
     Dosage: 10000 UNITS
     Dates: start: 20241114, end: 20241114
  6. SODIUM CHLORIDE [Concomitant]
     Active Substance: SODIUM CHLORIDE
     Indication: Vehicle solution use
     Dates: start: 20241108, end: 20241114
  7. SODIUM CHLORIDE [Concomitant]
     Active Substance: SODIUM CHLORIDE
     Dates: start: 20241114, end: 20241114

REACTIONS (1)
  - Ovarian hyperstimulation syndrome [Unknown]

NARRATIVE: CASE EVENT DATE: 20241127
